FAERS Safety Report 24095903 (Version 4)
Quarter: 2025Q4

REPORT INFORMATION
  Report Type: Spontaneous
  Country: US (occurrence: US)
  Receive Date: 20240716
  Receipt Date: 20251230
  Transmission Date: 20260117
  Serious: No
  Sender: SANOFI AVENTIS
  Company Number: US-SA-SAC20240710000855

PATIENT
  Age: 35 Year
  Sex: Female
  Weight: 56.69 kg

DRUGS (2)
  1. DUPIXENT [Suspect]
     Active Substance: DUPILUMAB
     Indication: Eosinophilic oesophagitis
     Dosage: 300 MG, QW
     Route: 058
     Dates: start: 20240530
  2. DUPIXENT [Suspect]
     Active Substance: DUPILUMAB
     Dosage: 300 MG, QOW
     Route: 058

REACTIONS (7)
  - Injection site urticaria [Recovered/Resolved]
  - Eye discharge [Not Recovered/Not Resolved]
  - Sleep disorder due to a general medical condition [Unknown]
  - Injection site pruritus [Recovered/Resolved]
  - Hypersensitivity [Not Recovered/Not Resolved]
  - Dry eye [Unknown]
  - Inappropriate schedule of product administration [Unknown]

NARRATIVE: CASE EVENT DATE: 20240101
